FAERS Safety Report 5594032-8 (Version None)
Quarter: 2008Q1

REPORT INFORMATION
  Report Type: 
  Country: None (occurrence: None)
  Receive Date: 20080116
  Receipt Date: 20080111
  Transmission Date: 20080703
  Serious: Yes (Hospitalization)
  Sender: FDA-Public Use
  Company Number: CA-MERCK-0801CAN00137

PATIENT
  Sex: Male

DRUGS (2)
  1. FOSAMAX PLUS D [Suspect]
     Indication: OSTEOPOROSIS
     Route: 048
     Dates: start: 20070701
  2. FOSAMAX PLUS D [Suspect]
     Indication: NEUROPATHY PERIPHERAL
     Route: 048
     Dates: start: 20070701

REACTIONS (4)
  - ABDOMINAL DISTENSION [None]
  - LIVER DISORDER [None]
  - MALAISE [None]
  - OESOPHAGEAL HAEMORRHAGE [None]
